FAERS Safety Report 7106906-7 (Version None)
Quarter: 2010Q4

REPORT INFORMATION
  Report Type: 
  Country: None (occurrence: None)
  Receive Date: 20101116
  Receipt Date: 20100901
  Transmission Date: 20110411
  Serious: No
  Sender: FDA-Public Use
  Company Number: US-ABBOTT-10P-163-0667742-00

PATIENT
  Sex: Male

DRUGS (3)
  1. SIMCOR [Suspect]
     Indication: PRODUCT USED FOR UNKNOWN INDICATION
     Dates: start: 20100828
  2. UNKNOWN HYPERTENSION MEDICATION [Concomitant]
     Indication: HYPERTENSION
  3. UNKNOWN SLEEPING AID [Concomitant]
     Indication: INSOMNIA

REACTIONS (4)
  - FEELING HOT [None]
  - FLUSHING [None]
  - MUSCULAR WEAKNESS [None]
  - PRURITUS GENERALISED [None]
